FAERS Safety Report 6936078-0 (Version None)
Quarter: 2010Q3

REPORT INFORMATION
  Report Type: 
  Country: None (occurrence: None)
  Receive Date: 20100819
  Receipt Date: 20100819
  Transmission Date: 20110219
  Serious: Yes (Hospitalization)
  Sender: FDA-Public Use
  Company Number: None

PATIENT
  Age: 60 Year
  Sex: Male
  Weight: 90.7194 kg

DRUGS (1)
  1. MOXIFLOXACIN HCL [Suspect]
     Indication: PNEUMONIA
     Dosage: 400MG DAILY PO
     Route: 048
     Dates: start: 20100814, end: 20100816

REACTIONS (5)
  - AGITATION [None]
  - DISORIENTATION [None]
  - DYSPHEMIA [None]
  - FEELING DRUNK [None]
  - PARANOIA [None]
